FAERS Safety Report 14152205 (Version 3)
Quarter: 2017Q4

REPORT INFORMATION
  Report Type: Spontaneous
  Country: TR (occurrence: TR)
  Receive Date: 20171102
  Receipt Date: 20171227
  Transmission Date: 20180321
  Serious: Yes (Death, Disabling)
  Sender: FDA-Public Use
  Company Number: TR-BAYER-2017-207235

PATIENT
  Age: 84 Year
  Sex: Male

DRUGS (1)
  1. CIPROXIN 750 MG [Suspect]
     Active Substance: CIPROFLOXACIN
     Indication: PROSTATITIS
     Dosage: UNK
     Route: 048
     Dates: start: 20170913

REACTIONS (7)
  - Gait inability [None]
  - Cardiac arrest [Fatal]
  - Dizziness [Not Recovered/Not Resolved]
  - Fall [Not Recovered/Not Resolved]
  - Kidney enlargement [None]
  - Loss of consciousness [Not Recovered/Not Resolved]
  - Dyspnoea exertional [Not Recovered/Not Resolved]

NARRATIVE: CASE EVENT DATE: 20170913
